FAERS Safety Report 14164983 (Version 1)
Quarter: 2017Q4

REPORT INFORMATION
  Report Type: Spontaneous
  Country: US (occurrence: US)
  Receive Date: 20171106
  Receipt Date: 20171106
  Transmission Date: 20180321
  Serious: Yes (Life-Threatening, Hospitalization, Disabling)
  Sender: FDA-Public Use
  Company Number: None

PATIENT
  Sex: Male
  Weight: 72 kg

DRUGS (5)
  1. ATIVAN [Concomitant]
     Active Substance: LORAZEPAM
  2. KLONOPIN [Concomitant]
     Active Substance: CLONAZEPAM
  3. LEVAQUIN [Suspect]
     Active Substance: LEVOFLOXACIN
     Indication: PNEUMONIA
     Dosage: ?          QUANTITY:10 TABLET(S);?
     Route: 048
     Dates: start: 20170715, end: 20170724
  4. BENADRYL [Concomitant]
     Active Substance: DIPHENHYDRAMINE HYDROCHLORIDE
  5. HYDROXYZINE [Concomitant]
     Active Substance: HYDROXYZINE HYDROCHLORIDE

REACTIONS (8)
  - Poor quality sleep [None]
  - Panic attack [None]
  - Agoraphobia [None]
  - Dyspnoea [None]
  - Dysphagia [None]
  - Fear [None]
  - Impaired quality of life [None]
  - Anxiety [None]

NARRATIVE: CASE EVENT DATE: 20170806
